FAERS Safety Report 8059235-1 (Version None)
Quarter: 2012Q1

REPORT INFORMATION
  Report Type: 
  Country: None (occurrence: None)
  Receive Date: 20120112
  Receipt Date: 20111230
  Transmission Date: 20120608
  Serious: Yes (Hospitalization)
  Sender: FDA-Public Use
  Company Number: 1000026774

PATIENT
  Age: 83 Year
  Sex: Female

DRUGS (2)
  1. REMINYL (GALANTAMINE HYDROBROMIDE) (GALANTAMINE HYDROBROMIDE) [Concomitant]
  2. ESCITALOPRAM OXALATE [Suspect]
     Indication: DEPRESSION
     Dosage: REDUCED DOSE
     Dates: end: 20110701

REACTIONS (3)
  - LOSS OF CONSCIOUSNESS [None]
  - HYPONATRAEMIA [None]
  - POSTICTAL STATE [None]
